FAERS Safety Report 24787217 (Version 1)
Quarter: 2024Q4

REPORT INFORMATION
  Report Type: Spontaneous
  Country: FR (occurrence: FR)
  Receive Date: 20241230
  Receipt Date: 20241230
  Transmission Date: 20250115
  Serious: Yes (Hospitalization, Other)
  Sender: ORGANON
  Company Number: None

PATIENT
  Sex: Male
  Weight: 3.32 kg

DRUGS (4)
  1. EBASTINE [Suspect]
     Active Substance: EBASTINE
     Indication: Hypersensitivity
     Dosage: 5 MILLIGRAM, QD
     Route: 064
     Dates: start: 2023, end: 20231111
  2. FLUTICASONE PROPIONATE [Suspect]
     Active Substance: FLUTICASONE PROPIONATE
     Indication: Hypersensitivity
     Dosage: 500 MICROGRAM, QD
     Route: 064
     Dates: start: 2023, end: 20231111
  3. SEROPRAM (CITALOPRAM HYDROBROMIDE) [Suspect]
     Active Substance: CITALOPRAM HYDROBROMIDE
     Indication: Product used for unknown indication
     Dosage: 20 MILLIGRAM, QD
     Route: 064
     Dates: start: 2023, end: 20231111
  4. FLUTICASONE FUROATE [Suspect]
     Active Substance: FLUTICASONE FUROATE
     Indication: Hypersensitivity
     Dosage: 1 DOSAGE FORM, QD
     Route: 064
     Dates: start: 2023, end: 20231111

REACTIONS (4)
  - Respiratory distress [Recovered/Resolved]
  - Pneumothorax [Recovered/Resolved]
  - Somnolence [Recovered/Resolved]
  - Maternal exposure during pregnancy [Recovered/Resolved]

NARRATIVE: CASE EVENT DATE: 20230101
